FAERS Safety Report 19441664 (Version 12)
Quarter: 2024Q3

REPORT INFORMATION
  Report Type: Spontaneous
  Country: US (occurrence: US)
  Receive Date: 20210621
  Receipt Date: 20240822
  Transmission Date: 20241017
  Serious: Yes (Disabling, Other)
  Sender: ORGANON
  Company Number: US-ORGANON-O2106USA001587

PATIENT
  Sex: Female

DRUGS (3)
  1. SINGULAIR [Suspect]
     Active Substance: MONTELUKAST SODIUM
     Indication: Rhinitis allergic
     Dosage: 1 TAB, ORALLY QPM
     Route: 048
     Dates: start: 1999, end: 2012
  2. SINGULAIR [Suspect]
     Active Substance: MONTELUKAST SODIUM
     Dosage: TAKE 1 TABLET BY MOUTH EVERY EVENING, TOTAL 30 TABLETS
     Route: 048
     Dates: start: 2005, end: 2020
  3. ZYRTEC [Concomitant]
     Active Substance: CETIRIZINE HYDROCHLORIDE
     Indication: Rhinitis allergic
     Dosage: UNK

REACTIONS (47)
  - Neuropsychological symptoms [Not Recovered/Not Resolved]
  - Intentional self-injury [Not Recovered/Not Resolved]
  - Anxiety [Not Recovered/Not Resolved]
  - Suicidal ideation [Not Recovered/Not Resolved]
  - Depression [Not Recovered/Not Resolved]
  - Bipolar II disorder [Unknown]
  - Generalised anxiety disorder [Unknown]
  - Sleep disorder [Unknown]
  - Tremor [Unknown]
  - Dysphemia [Unknown]
  - Autism spectrum disorder [Not Recovered/Not Resolved]
  - Crohn^s disease [Unknown]
  - Post-traumatic stress disorder [Unknown]
  - Attention deficit hyperactivity disorder [Unknown]
  - Mania [Unknown]
  - Borderline personality disorder [Unknown]
  - Ulcer [Unknown]
  - Head injury [Unknown]
  - Speech disorder [Unknown]
  - Cough [Unknown]
  - Upper respiratory tract infection [Recovered/Resolved]
  - Hypoaesthesia [Unknown]
  - Dyspepsia [Unknown]
  - Stress [Not Recovered/Not Resolved]
  - Intervertebral disc degeneration [Unknown]
  - Fibromyalgia [Unknown]
  - Headache [Recovered/Resolved]
  - Paraesthesia [Unknown]
  - Cardiac discomfort [Unknown]
  - Dyspnoea [Unknown]
  - Sinus disorder [Unknown]
  - Nasal congestion [Recovering/Resolving]
  - Hypoaesthesia [Unknown]
  - Upper respiratory tract infection [Recovered/Resolved]
  - Oropharyngeal pain [Unknown]
  - Ear pain [Unknown]
  - Limb discomfort [Unknown]
  - Skin discolouration [Unknown]
  - Arthralgia [Unknown]
  - Burning sensation [Unknown]
  - Asthenia [Unknown]
  - Grip strength decreased [Unknown]
  - Tenderness [Unknown]
  - Neck pain [Unknown]
  - Loss of libido [Unknown]
  - Anhedonia [Unknown]
  - Stress [Unknown]

NARRATIVE: CASE EVENT DATE: 19990101
